FAERS Safety Report 11855739 (Version 1)
Quarter: 2015Q4

REPORT INFORMATION
  Report Type: Spontaneous
  Country: US (occurrence: US)
  Receive Date: 20151221
  Receipt Date: 20151221
  Transmission Date: 20160305
  Serious: No
  Sender: FDA-Public Use
  Company Number: US-BAYER-2015-487676

PATIENT
  Age: 61 Year
  Sex: Female
  Weight: 83.9 kg

DRUGS (3)
  1. BAYER LOW DOSE [Suspect]
     Active Substance: ASPIRIN
     Dosage: 1 DF, QD
     Route: 048
  2. ALEVE [Suspect]
     Active Substance: NAPROXEN SODIUM
     Indication: ANALGESIC THERAPY
     Dosage: 2 DF, OM (FIVE OR SIX DAYS A WEEK)
     Route: 048
  3. ALEVE [Suspect]
     Active Substance: NAPROXEN SODIUM
     Indication: ANALGESIC THERAPY
     Dosage: 1 DF (IN EVENING), OM (FIVE OR SIX DAYS A WEEK)
     Route: 048
     Dates: start: 201509

REACTIONS (4)
  - Product use issue [None]
  - Abdominal discomfort [Not Recovered/Not Resolved]
  - Product use issue [None]
  - Haemoptysis [Not Recovered/Not Resolved]

NARRATIVE: CASE EVENT DATE: 2015
